FAERS Safety Report 16128927 (Version 2)
Quarter: 2025Q4

REPORT INFORMATION
  Report Type: Spontaneous
  Country: EU (occurrence: EU)
  Receive Date: 20190328
  Receipt Date: 20251014
  Transmission Date: 20260117
  Serious: Yes (Life-Threatening, Other)
  Sender: BAUSCH AND LOMB
  Company Number: None

PATIENT
  Age: 64 Year
  Sex: Female
  Weight: 80 kg

DRUGS (34)
  1. METFORMIN HYDROCHLORIDE [Suspect]
     Active Substance: METFORMIN HYDROCHLORIDE
     Indication: Type 2 diabetes mellitus
     Dosage: 3000 MILLIGRAM, 1 DAY
     Route: 048
     Dates: end: 20180725
  2. METFORMIN HYDROCHLORIDE [Suspect]
     Active Substance: METFORMIN HYDROCHLORIDE
     Dosage: DOSE RE-INTRODUCED
     Route: 065
  3. CLOPIDOGREL HYDROCHLORIDE [Suspect]
     Active Substance: CLOPIDOGREL HYDROCHLORIDE
     Indication: Prophylaxis
     Route: 048
     Dates: end: 20180725
  4. CLOPIDOGREL HYDROCHLORIDE [Suspect]
     Active Substance: CLOPIDOGREL HYDROCHLORIDE
     Dosage: DOSE RE-INTRODUCED
     Route: 065
  5. URAPIDIL [Suspect]
     Active Substance: URAPIDIL
     Indication: Hypertension
     Route: 048
     Dates: end: 20180725
  6. URAPIDIL [Suspect]
     Active Substance: URAPIDIL
     Dosage: DOSE RE-INTRODUCED
     Route: 065
  7. REPAGLINIDE [Suspect]
     Active Substance: REPAGLINIDE
     Indication: Type 2 diabetes mellitus
     Route: 048
     Dates: end: 20180725
  8. REPAGLINIDE [Suspect]
     Active Substance: REPAGLINIDE
     Dosage: DOSE RE-INTRODUCED
     Route: 065
  9. APIDRA [Suspect]
     Active Substance: INSULIN GLULISINE
     Indication: Type 2 diabetes mellitus
     Dosage: 6 IU IN THE MORNING - 10 IU IN THE EVENING
     Route: 058
     Dates: end: 20180725
  10. APIDRA [Suspect]
     Active Substance: INSULIN GLULISINE
     Dosage: DOSE RE-INTRODUCED
     Route: 065
  11. ELIQUIS [Suspect]
     Active Substance: APIXABAN
     Indication: Cerebrovascular accident prophylaxis
     Dosage: 2 DOSAGE FORM, 1 DAY
     Route: 048
     Dates: start: 2017, end: 20180725
  12. ELIQUIS [Suspect]
     Active Substance: APIXABAN
     Indication: Atrial fibrillation
     Dosage: 2 DOSAGE FORM, 1 DAY
     Route: 048
     Dates: start: 2017, end: 20180725
  13. ELIQUIS [Suspect]
     Active Substance: APIXABAN
     Dosage: DOSE RE-INTRODUCED
     Route: 065
  14. KARDEGIC [Suspect]
     Active Substance: ASPIRIN DL-LYSINE
     Indication: Prophylaxis
     Dosage: POWDER FOR ORAL SOLUTION IN SACHET-DOSE
     Route: 048
  15. GABAPENTIN [Suspect]
     Active Substance: GABAPENTIN
     Indication: Product used for unknown indication
     Route: 048
     Dates: end: 20180725
  16. GABAPENTIN [Suspect]
     Active Substance: GABAPENTIN
     Dosage: DOSE RE-INTRODUCED
     Route: 065
  17. COVERAM [Suspect]
     Active Substance: AMLODIPINE\PERINDOPRIL
     Indication: Hypertension
     Dosage: 10 MG / 10 MG TABLETS
     Route: 048
     Dates: end: 20180725
  18. COVERAM [Suspect]
     Active Substance: AMLODIPINE\PERINDOPRIL
     Dosage: DOSE RE-INTRODUCED
     Route: 065
  19. EZETIMIBE\SIMVASTATIN [Suspect]
     Active Substance: EZETIMIBE\SIMVASTATIN
     Indication: Dyslipidaemia
     Dosage: 10 MG / 40 MG TABLETS
     Route: 048
     Dates: end: 20180725
  20. EZETIMIBE\SIMVASTATIN [Suspect]
     Active Substance: EZETIMIBE\SIMVASTATIN
     Dosage: DOSE RE-INTRODUCED
     Route: 065
  21. TOUJEO [Suspect]
     Active Substance: INSULIN GLARGINE
     Indication: Type 2 diabetes mellitus
     Route: 058
     Dates: start: 201710, end: 20180725
  22. TOUJEO [Suspect]
     Active Substance: INSULIN GLARGINE
     Dosage: DOSE RE-INTRODUCED
     Route: 065
  23. RILMENIDINE [Suspect]
     Active Substance: RILMENIDINE
     Indication: Hypertension
     Route: 048
     Dates: end: 20180725
  24. RILMENIDINE [Suspect]
     Active Substance: RILMENIDINE
     Dosage: DOSE RE-INTRODUCED
     Route: 065
  25. BISOPROLOL [Suspect]
     Active Substance: BISOPROLOL
     Indication: Hypertension
     Route: 048
     Dates: start: 201611, end: 20180725
  26. BISOPROLOL [Suspect]
     Active Substance: BISOPROLOL
     Dosage: DOSE RE-INTRODUCED
     Route: 065
  27. ALTHIAZIDE\SPIRONOLACTONE [Suspect]
     Active Substance: ALTHIAZIDE\SPIRONOLACTONE
     Indication: Hypertension
     Route: 048
     Dates: end: 20180725
  28. ALTHIAZIDE\SPIRONOLACTONE [Suspect]
     Active Substance: ALTHIAZIDE\SPIRONOLACTONE
     Dosage: DOSE RE-INTRODUCED
     Route: 065
  29. ALPRAZOLAM [Suspect]
     Active Substance: ALPRAZOLAM
     Indication: Product used for unknown indication
     Route: 048
     Dates: end: 20180725
  30. ALPRAZOLAM [Suspect]
     Active Substance: ALPRAZOLAM
     Dosage: DOSE RE-INTRODUCED
     Route: 065
  31. ESOMEPRAZOLE [Suspect]
     Active Substance: ESOMEPRAZOLE
     Indication: Product used for unknown indication
     Route: 048
     Dates: end: 20180725
  32. ESOMEPRAZOLE [Suspect]
     Active Substance: ESOMEPRAZOLE
     Dosage: DOSE RE-INTRODUCED
     Route: 065
  33. BISOPROLOL FUMARATE [Suspect]
     Active Substance: BISOPROLOL FUMARATE
     Indication: Hypertension
     Route: 048
     Dates: start: 201611, end: 20180725
  34. BISOPROLOL FUMARATE [Suspect]
     Active Substance: BISOPROLOL FUMARATE
     Dosage: DOSE RE-INTRODUCED
     Route: 065

REACTIONS (6)
  - Rhabdomyolysis [Recovered/Resolved]
  - Acute kidney injury [Recovered/Resolved]
  - Hyperkalaemia [Recovered/Resolved]
  - Hypoglycaemia [Recovered/Resolved]
  - Lactic acidosis [Recovered/Resolved]
  - Prescribed underdose [Unknown]

NARRATIVE: CASE EVENT DATE: 20180725
